FAERS Safety Report 8215986-7 (Version None)
Quarter: 2012Q1

REPORT INFORMATION
  Report Type: 
  Country: None (occurrence: None)
  Receive Date: 20120316
  Receipt Date: 20120313
  Transmission Date: 20120608
  Serious: No
  Sender: FDA-Public Use
  Company Number: US-PFIZER INC-2012067708

PATIENT
  Sex: Female
  Weight: 44.444 kg

DRUGS (9)
  1. CHANTIX [Suspect]
     Indication: SMOKING CESSATION THERAPY
     Dosage: UNK
     Dates: start: 20080101
  2. CHANTIX [Suspect]
     Dosage: UNK
     Dates: start: 20120101
  3. TRAZODONE [Concomitant]
     Indication: SLEEP DISORDER
     Dosage: 75 MG, DAILY
  4. KLONOPIN [Concomitant]
     Indication: ANXIETY
  5. LISINOPRIL [Concomitant]
     Indication: HYPERTENSION
     Dosage: 10 MG, DAILY
  6. METHADONE [Concomitant]
     Indication: CARPAL TUNNEL SYNDROME
  7. METHADONE [Concomitant]
     Indication: ARTHRITIS
  8. KLONOPIN [Concomitant]
     Indication: STRESS
     Dosage: 1 MG, AT BEDTIME
  9. METHADONE [Concomitant]
     Indication: MULTIPLE SCLEROSIS
     Dosage: 10 MG, 2X/DAY

REACTIONS (2)
  - NAUSEA [None]
  - MALAISE [None]
